FAERS Safety Report 11403527 (Version 1)
Quarter: 2015Q3

REPORT INFORMATION
  Report Type: Spontaneous
  Country: None (occurrence: None)
  Receive Date: 20150820
  Receipt Date: 20150820
  Transmission Date: 20151125
  Serious: Yes (Disabling)
  Sender: FDA-Public Use
  Company Number: None

PATIENT
  Age: 40 Year
  Sex: Female
  Weight: 40.82 kg

DRUGS (1)
  1. UCERIS [Suspect]
     Active Substance: BUDESONIDE
     Dosage: 1 PILL
     Route: 048

REACTIONS (3)
  - Back pain [None]
  - Chest pain [None]
  - Rash [None]

NARRATIVE: CASE EVENT DATE: 20150813
